FAERS Safety Report 18247775 (Version 1)
Quarter: 2020Q3

REPORT INFORMATION
  Report Type: Spontaneous
  Country: CN (occurrence: CN)
  Receive Date: 20200909
  Receipt Date: 20200909
  Transmission Date: 20201103
  Serious: Yes (Hospitalization)
  Sender: FDA-Public Use
  Company Number: CN-SHIRE-CN202028095

PATIENT

DRUGS (1)
  1. HUMAN ALBUMIN [Suspect]
     Active Substance: ALBUMIN HUMAN
     Indication: SYMPTOMATIC TREATMENT
     Dosage: 10 GRAM, 1X/DAY:QD
     Route: 041
     Dates: start: 20200823, end: 20200823

REACTIONS (9)
  - Palpitations [Recovering/Resolving]
  - Pallor [Recovering/Resolving]
  - Back pain [Recovering/Resolving]
  - Chills [Recovering/Resolving]
  - Pruritus [Recovering/Resolving]
  - Infusion related hypersensitivity reaction [Unknown]
  - Dyspnoea [Recovering/Resolving]
  - Lip discolouration [Recovering/Resolving]
  - Oedema peripheral [Recovering/Resolving]

NARRATIVE: CASE EVENT DATE: 20200823
